FAERS Safety Report 20057972 (Version 1)
Quarter: 2021Q4

REPORT INFORMATION
  Report Type: Report from Study
  Country: GB (occurrence: GB)
  Receive Date: 20211111
  Receipt Date: 20211111
  Transmission Date: 20220303
  Serious: Yes (Death)
  Sender: FDA-Public Use
  Company Number: GB-NOVARTISPH-NVSC2021GB257734

PATIENT
  Age: 64 Year
  Sex: Female

DRUGS (1)
  1. HYRIMOZ [Suspect]
     Active Substance: ADALIMUMAB-ADAZ
     Indication: Crohn^s disease
     Dosage: 40 MG, FORTNIGHTLY (ROUTE:AS DIRECTED)
     Route: 065
     Dates: start: 20190802

REACTIONS (1)
  - Death [Fatal]

NARRATIVE: CASE EVENT DATE: 20210813
